FAERS Safety Report 10061733 (Version 1)
Quarter: 2014Q2

REPORT INFORMATION
  Report Type: Spontaneous
  Country: US (occurrence: None)
  Receive Date: 20140403
  Receipt Date: 20140403
  Transmission Date: 20141212
  Serious: Yes (Hospitalization, Other)
  Sender: FDA-Public Use
  Company Number: US-TORRENT-00000735

PATIENT
  Age: 71 Year
  Sex: Female
  Weight: 81.65 kg

DRUGS (5)
  1. LOSARTAN POTASSIUM + HCTZ [Suspect]
     Indication: HYPERTENSION
     Dosage: 1 TABLET
     Dates: start: 201401, end: 20140213
  2. OMEPRAZOLE (OMEPRAZOLE) [Concomitant]
  3. VITAMINS (VITAMINS) [Concomitant]
  4. FISH OIL (FISH OIL) [Concomitant]
  5. BABY ASPIRIN (ACETYLSALICYLIC ACID) [Concomitant]

REACTIONS (7)
  - Chest pain [None]
  - Dizziness [None]
  - Dizziness [None]
  - Presyncope [None]
  - Blood pressure increased [None]
  - Product substitution issue [None]
  - Reaction to drug excipients [None]
